FAERS Safety Report 5369308-X (Version None)
Quarter: 2007Q2

REPORT INFORMATION
  Report Type: 
  Country: None (occurrence: None)
  Receive Date: 20070625
  Receipt Date: 20070228
  Transmission Date: 20071010
  Serious: No
  Sender: FDA-Public Use
  Company Number: US-ASTRAZENECA-2007UW03923

PATIENT
  Age: 35 Year
  Sex: Female
  Weight: 71.7 kg

DRUGS (4)
  1. CRESTOR [Suspect]
     Route: 048
  2. ATIVAN [Concomitant]
  3. PERCOCET [Concomitant]
     Indication: PAIN
  4. SYNTHROID [Concomitant]

REACTIONS (3)
  - CARDIAC FLUTTER [None]
  - SUPRAVENTRICULAR EXTRASYSTOLES [None]
  - VENTRICULAR EXTRASYSTOLES [None]
